FAERS Safety Report 9691322 (Version 1)
Quarter: 2013Q4

REPORT INFORMATION
  Report Type: Spontaneous
  Country: US (occurrence: US)
  Receive Date: 20131115
  Receipt Date: 20131115
  Transmission Date: 20140711
  Serious: Yes (Other)
  Sender: FDA-Public Use
  Company Number: US-BAYER-2013-138526

PATIENT
  Age: 56 Year
  Sex: Male

DRUGS (2)
  1. SORAFENIB (RAF KINASE INHIBITOR) [Suspect]
     Indication: ACUTE MYELOID LEUKAEMIA
  2. LENALIDOMIDE [Concomitant]
     Indication: ACUTE MYELOID LEUKAEMIA

REACTIONS (4)
  - Neutrophilic dermatosis [None]
  - Neutrophilic panniculitis [None]
  - Pulmonary mass [None]
  - Off label use [None]
